FAERS Safety Report 4896260-3 (Version None)
Quarter: 2006Q1

REPORT INFORMATION
  Report Type: 
  Country: None (occurrence: None)
  Receive Date: 20060126
  Receipt Date: 20060113
  Transmission Date: 20060701
  Serious: Yes (Hospitalization, Other)
  Sender: FDA-Public Use
  Company Number: US-2005-023981

PATIENT
  Age: 40 Year
  Sex: Female
  Weight: 55 kg

DRUGS (5)
  1. BETASERON [Suspect]
     Indication: RELAPSING-REMITTING MULTIPLE SCLEROSIS
     Dosage: 8 MIU, EVERY 2D, SUBCUTANEOUS
     Route: 058
     Dates: start: 20031205
  2. DITROPAN XL [Concomitant]
  3. NECON [Concomitant]
  4. MVI (VITAMINS NOS) [Concomitant]
  5. ADVIL [Concomitant]

REACTIONS (11)
  - CONGENITAL MEGACOLON [None]
  - HEPATIC STEATOSIS [None]
  - INJECTION SITE REACTION [None]
  - LAXATIVE ABUSE [None]
  - LUNG NEOPLASM [None]
  - MUSCLE INJURY [None]
  - PYELONEPHRITIS [None]
  - SMALL INTESTINAL OBSTRUCTION [None]
  - URINARY INCONTINENCE [None]
  - URINARY TRACT INFECTION [None]
  - WEIGHT DECREASED [None]
